FAERS Safety Report 7190121-5 (Version None)
Quarter: 2010Q4

REPORT INFORMATION
  Report Type: 
  Country: None (occurrence: None)
  Receive Date: 20101213
  Receipt Date: 20101129
  Transmission Date: 20110411
  Serious: Yes (Death, Life-Threatening, Hospitalization)
  Sender: FDA-Public Use
  Company Number: WAES 1010USA00539

PATIENT
  Age: 58 Year
  Sex: Female

DRUGS (6)
  1. JANUVIA [Suspect]
     Indication: TYPE 2 DIABETES MELLITUS
     Dosage: PO
     Route: 048
     Dates: start: 20100224, end: 20100927
  2. BLINDED THERAPY [Suspect]
     Indication: PRODUCT USED FOR UNKNOWN INDICATION
     Dosage: SC
     Route: 058
     Dates: start: 20100224, end: 20100927
  3. BLINDED THERAPY [Suspect]
     Indication: PRODUCT USED FOR UNKNOWN INDICATION
     Dosage: PO
     Route: 048
     Dates: start: 20100224, end: 20100927
  4. EGILOK [Concomitant]
  5. AMLODIPINE [Concomitant]
  6. ENALAPRIL MALEATE [Concomitant]

REACTIONS (3)
  - METASTASES TO LYMPH NODES [None]
  - PYELONEPHRITIS [None]
  - UTERINE CANCER [None]
